FAERS Safety Report 5777780-6 (Version None)
Quarter: 2008Q2

REPORT INFORMATION
  Report Type: 
  Country: None (occurrence: None)
  Receive Date: 20080601
  Receipt Date: 20080106
  Transmission Date: 20081010
  Serious: No
  Sender: FDA-Public Use
  Company Number: US200801001326

PATIENT
  Age: 54 Year
  Sex: Female
  Weight: 77.1 kg

DRUGS (4)
  1. BYETTA [Suspect]
     Indication: TYPE 2 DIABETES MELLITUS
     Dosage: 5 UG, 2/D, SUBCUTANEOUS
     Route: 058
     Dates: start: 20071001
  2. GLUCOPHAGE [Concomitant]
  3. XANAX [Concomitant]
  4. NEXIUM [Concomitant]

REACTIONS (6)
  - BLOOD GLUCOSE DECREASED [None]
  - DYSPHAGIA [None]
  - EAR DISCOMFORT [None]
  - INFLAMMATION [None]
  - NAUSEA [None]
  - UPPER RESPIRATORY TRACT INFECTION [None]
